FAERS Safety Report 11413430 (Version 1)
Quarter: 2015Q3

REPORT INFORMATION
  Report Type: Spontaneous
  Country: US (occurrence: US)
  Receive Date: 20150821
  Receipt Date: 20150821
  Transmission Date: 20151125
  Serious: No
  Sender: FDA-Public Use
  Company Number: US-ELI_LILLY_AND_COMPANY-US201210007515

PATIENT
  Sex: Female

DRUGS (4)
  1. HUMULIN N [Suspect]
     Active Substance: INSULIN HUMAN
     Dosage: 4 U, AT NIGHT
     Dates: start: 201209
  2. HUMULIN N [Suspect]
     Active Substance: INSULIN HUMAN
     Dosage: 4 U, AT NIGHT
     Dates: start: 201207, end: 201209
  3. HUMULIN N [Suspect]
     Active Substance: INSULIN HUMAN
     Indication: TYPE 2 DIABETES MELLITUS
     Dosage: UNK
  4. HUMULIN N [Suspect]
     Active Substance: INSULIN HUMAN
     Dosage: 4 U, AT NIGHT
     Dates: start: 20120508, end: 201207

REACTIONS (4)
  - Incorrect dose administered [Unknown]
  - Medication error [Unknown]
  - Exposure during pregnancy [Unknown]
  - Blood glucose increased [Unknown]

NARRATIVE: CASE EVENT DATE: 2009
